FAERS Safety Report 16822155 (Version 3)
Quarter: 2019Q4

REPORT INFORMATION
  Report Type: Spontaneous
  Country: US (occurrence: US)
  Receive Date: 20190918
  Receipt Date: 20191107
  Transmission Date: 20200122
  Serious: No
  Sender: FDA-Public Use
  Company Number: US-PFIZER INC-2019083602

PATIENT
  Age: 40 Year
  Sex: Female
  Weight: 61.22 kg

DRUGS (7)
  1. VFEND [Suspect]
     Active Substance: VORICONAZOLE
     Dosage: 200 MG, AS NEEDED (200MG, ONE TABLET TWICE A DAY)
     Dates: start: 20190111
  2. VFEND [Suspect]
     Active Substance: VORICONAZOLE
     Dosage: 300 MG, 2X/DAY(APPROXIMATELY 300MG TWICE A DAY WEEK 2)
     Route: 048
  3. VORICONAZOLE. [Suspect]
     Active Substance: VORICONAZOLE
     Indication: CELLULITIS
  4. IBUPROFEN. [Concomitant]
     Active Substance: IBUPROFEN
     Dosage: UNK
  5. VFEND [Suspect]
     Active Substance: VORICONAZOLE
     Indication: ASPERGILLUS INFECTION
     Dosage: 200 MG, 2X/DAY (1 TABLET TWO TIMES A DAY/ ONE TAB EVERY 12 HOUR)
     Route: 048
  6. VFEND [Suspect]
     Active Substance: VORICONAZOLE
     Indication: CELLULITIS
     Dosage: 150 MG, 2X/DAY (TAKE 3 TABLET (150MG TOTAL) TWO TIMES A DAY)
     Route: 048
  7. VORICONAZOLE. [Suspect]
     Active Substance: VORICONAZOLE
     Indication: ASPERGILLUS INFECTION
     Dosage: 300 MG, 2X/DAY (APPROXIMATELY 300MG TWICE A DAY WEEK 1)
     Route: 042
     Dates: start: 20190111

REACTIONS (3)
  - Rhinitis allergic [Unknown]
  - Intentional product use issue [Unknown]
  - Vision blurred [Unknown]
